FAERS Safety Report 25939444 (Version 1)
Quarter: 2025Q4

REPORT INFORMATION
  Report Type: Report from Study
  Country: EU (occurrence: EU)
  Receive Date: 20251020
  Receipt Date: 20251020
  Transmission Date: 20260118
  Serious: Yes (Hospitalization)
  Sender: GENMAB
  Company Number: EU-ABBVIE-6500889

PATIENT
  Age: 63 Year
  Sex: Female

DRUGS (4)
  1. EPCORITAMAB [Suspect]
     Active Substance: EPCORITAMAB
     Indication: Diffuse large B-cell lymphoma
     Dosage: FULL DOSE
     Route: 058
     Dates: start: 20250924
  2. EPCORITAMAB [Suspect]
     Active Substance: EPCORITAMAB
     Dosage: INITIAL DOSE, SOLUTION FOR INJECTION
     Route: 058
     Dates: start: 20250113, end: 20250113
  3. EPCORITAMAB [Suspect]
     Active Substance: EPCORITAMAB
     Dosage: INTERMEDIATE DOSE, SOLUTION FOR INJECTION
     Route: 058
     Dates: start: 20250120, end: 20250120
  4. EPCORITAMAB [Suspect]
     Active Substance: EPCORITAMAB
     Dosage: FULL DOSE, SOLUTION FOR INJECTION
     Route: 058
     Dates: start: 20250210, end: 20250917

REACTIONS (2)
  - Inflammation [Unknown]
  - Chills [Unknown]

NARRATIVE: CASE EVENT DATE: 20250917
